FAERS Safety Report 9734121 (Version 3)
Quarter: 2013Q4

REPORT INFORMATION
  Report Type: Spontaneous
  Country: US (occurrence: US)
  Receive Date: 20131205
  Receipt Date: 20131223
  Transmission Date: 20140711
  Serious: Yes (Other)
  Sender: FDA-Public Use
  Company Number: US-RB-061238-13

PATIENT
  Age: 59 Year
  Sex: Male

DRUGS (1)
  1. DELSYM ADULT ORANGE LIQUID [Suspect]
     Indication: PRODUCT USED FOR UNKNOWN INDICATION
     Dosage: TOOK 10ML DAILY
     Route: 048
     Dates: start: 20131213

REACTIONS (1)
  - Blood pressure diastolic increased [Not Recovered/Not Resolved]
